FAERS Safety Report 12700891 (Version 1)
Quarter: 2016Q3

REPORT INFORMATION
  Report Type: Spontaneous
  Country: US (occurrence: None)
  Receive Date: 20160830
  Receipt Date: 20160830
  Transmission Date: 20161109
  Serious: No
  Sender: FDA-Public Use
  Company Number: None

PATIENT
  Age: 4 Year
  Sex: Male
  Weight: 16.78 kg

DRUGS (7)
  1. MERCAPTOPURINE. [Concomitant]
     Active Substance: MERCAPTOPURINE
  2. METHOTREXATE. [Concomitant]
     Active Substance: METHOTREXATE
  3. VINCRISTINE [Concomitant]
     Active Substance: VINCRISTINE
  4. DEXAMETHASONE. [Concomitant]
     Active Substance: DEXAMETHASONE
  5. COMFORT SHIELD BARRIER [Suspect]
     Active Substance: DIMETHICONE
     Indication: SKIN DISORDER
     Dosage: 24 WIPES AS NEEDED APPLIED TO A SURFACE, USUALLY THE SKIN
     Route: 061
     Dates: start: 20160807, end: 20160821
  6. ZYRTEC [Concomitant]
     Active Substance: CETIRIZINE HYDROCHLORIDE
  7. BACTRIM [Concomitant]
     Active Substance: SULFAMETHOXAZOLE\TRIMETHOPRIM

REACTIONS (3)
  - Product use issue [None]
  - Erythema [None]
  - Anal pruritus [None]

NARRATIVE: CASE EVENT DATE: 20160808
